FAERS Safety Report 17651611 (Version 1)
Quarter: 2020Q2

REPORT INFORMATION
  Report Type: Spontaneous
  Country: US (occurrence: US)
  Receive Date: 20200408
  Receipt Date: 20200408
  Transmission Date: 20200713
  Serious: No
  Sender: FDA-Public Use
  Company Number: None

PATIENT
  Age: 73 Year
  Sex: Male
  Weight: 69 kg

DRUGS (1)
  1. INSULIN DETEMIR 100 UNIT/ML INJ. [Suspect]
     Active Substance: INSULIN DETEMIR
     Indication: DIABETES MELLITUS
     Dosage: ?          OTHER STRENGTH:100 UNIT/ML;?
     Route: 058
     Dates: start: 20160309, end: 20200315

REACTIONS (4)
  - Dizziness [None]
  - Hypoglycaemia [None]
  - Acute kidney injury [None]
  - Hypertension [None]

NARRATIVE: CASE EVENT DATE: 20200314
